APPROVED DRUG PRODUCT: KETOROLAC TROMETHAMINE
Active Ingredient: KETOROLAC TROMETHAMINE
Strength: 15MG/ML
Dosage Form/Route: INJECTABLE;INJECTION
Application: A075784 | Product #001 | TE Code: AP
Applicant: FRESENIUS KABI USA LLC
Approved: Jan 11, 2002 | RLD: No | RS: No | Type: RX